FAERS Safety Report 7150703-3 (Version None)
Quarter: 2010Q4

REPORT INFORMATION
  Report Type: 
  Country: None (occurrence: None)
  Receive Date: 20101207
  Receipt Date: 20101207
  Transmission Date: 20110411
  Serious: Yes (Hospitalization)
  Sender: FDA-Public Use
  Company Number: None

PATIENT
  Age: 58 Year
  Sex: Female
  Weight: 45.8 kg

DRUGS (4)
  1. FERAHEME [Suspect]
     Indication: IRON DEFICIENCY
     Dosage: 510 MG 2INJ 3 WEEKS APART!
     Dates: start: 20101012
  2. FERAHEME [Suspect]
     Indication: RENAL FAILURE CHRONIC
     Dosage: 510 MG 2INJ 3 WEEKS APART!
     Dates: start: 20101012
  3. FERAHEME [Suspect]
     Indication: IRON DEFICIENCY
     Dosage: 510 MG 2INJ 3 WEEKS APART!
     Dates: start: 20101102
  4. FERAHEME [Suspect]
     Indication: RENAL FAILURE CHRONIC
     Dosage: 510 MG 2INJ 3 WEEKS APART!
     Dates: start: 20101102

REACTIONS (2)
  - BODY TEMPERATURE DECREASED [None]
  - HYPERSOMNIA [None]
